FAERS Safety Report 14020050 (Version 1)
Quarter: 2017Q3

REPORT INFORMATION
  Report Type: Spontaneous
  Country: US (occurrence: US)
  Receive Date: 20170928
  Receipt Date: 20170928
  Transmission Date: 20171128
  Serious: No
  Sender: FDA-Public Use
  Company Number: US-ALLERGAN-1748121US

PATIENT
  Sex: Female

DRUGS (1)
  1. RECTIV [Suspect]
     Active Substance: NITROGLYCERIN
     Indication: ANAL FISSURE
     Dosage: UNK
     Dates: start: 20170824

REACTIONS (7)
  - Neck pain [Not Recovered/Not Resolved]
  - Pain in jaw [Recovered/Resolved]
  - Visual acuity reduced [Recovered/Resolved]
  - Nausea [Recovered/Resolved]
  - Expired product administered [Unknown]
  - Nasopharyngitis [Recovered/Resolved]
  - Dizziness [Recovered/Resolved]

NARRATIVE: CASE EVENT DATE: 201708
